FAERS Safety Report 13766501 (Version 3)
Quarter: 2017Q4

REPORT INFORMATION
  Report Type: Spontaneous
  Country: US (occurrence: US)
  Receive Date: 20170719
  Receipt Date: 20171030
  Transmission Date: 20180320
  Serious: No
  Sender: FDA-Public Use
  Company Number: US-APOTEX-2017AP012573

PATIENT
  Sex: Female

DRUGS (1)
  1. OMEGA 3 ACID ETHYL ESTERS [Suspect]
     Active Substance: OMEGA-3-ACID ETHYL ESTERS
     Indication: PRODUCT USED FOR UNKNOWN INDICATION
     Dosage: UNK, 120 LIQUID GEL CAPSULES
     Route: 065
     Dates: start: 2016

REACTIONS (2)
  - Product odour abnormal [Unknown]
  - Nausea [Unknown]

NARRATIVE: CASE EVENT DATE: 2017
